FAERS Safety Report 4796049-X (Version None)
Quarter: 2005Q3

REPORT INFORMATION
  Report Type: 
  Country: None (occurrence: None)
  Receive Date: 20050920
  Receipt Date: 20050125
  Transmission Date: 20060218
  Serious: Yes (Hospitalization)
  Sender: FDA-Public Use
  Company Number: US-JNJFOC-20040900291

PATIENT
  Age: 90 Year
  Sex: Male
  Weight: 85.2762 kg

DRUGS (6)
  1. DITROPAN XL [Suspect]
     Indication: URINARY INCONTINENCE
     Dosage: 5 MG, 1 IN 1 DAY, ORAL
     Route: 048
     Dates: start: 20020719, end: 20040516
  2. DIGOXIN [Concomitant]
  3. METOPROLOL TARTRATE [Concomitant]
  4. ASPIRIN [Concomitant]
  5. KLONOPIN [Concomitant]
  6. SENOKOT [Concomitant]

REACTIONS (1)
  - URINARY TRACT INFECTION [None]
